FAERS Safety Report 4751732-7 (Version None)
Quarter: 2005Q3

REPORT INFORMATION
  Report Type: 
  Country: None (occurrence: None)
  Receive Date: 20050822
  Receipt Date: 20050822
  Transmission Date: 20060218
  Serious: Yes (Life-Threatening, Hospitalization)
  Sender: FDA-Public Use
  Company Number: None

PATIENT
  Sex: Female
  Weight: 74.8435 kg

DRUGS (1)
  1. VIOXX [Suspect]
     Indication: ARTHRALGIA
     Dosage: AS NEEDED FOR PAIN    PO
     Route: 048
     Dates: start: 20030423, end: 20050920

REACTIONS (5)
  - HYPERCOAGULATION [None]
  - INTRACARDIAC THROMBUS [None]
  - MITRAL VALVE STENOSIS [None]
  - SPLENIC INFARCTION [None]
  - THROMBOSIS [None]
